FAERS Safety Report 9298069 (Version 1)
Quarter: 2013Q2

REPORT INFORMATION
  Report Type: Spontaneous
  Country: US (occurrence: US)
  Receive Date: 20130520
  Receipt Date: 20130520
  Transmission Date: 20140414
  Serious: Yes (Hospitalization, Other)
  Sender: FDA-Public Use
  Company Number: US-BRISTOL-MYERS SQUIBB COMPANY-18882217

PATIENT
  Age: 73 Year
  Sex: Male

DRUGS (1)
  1. YERVOY [Suspect]
     Dosage: 4TH TREATMENT CYCLE:31DEC2012
     Dates: end: 20121231

REACTIONS (4)
  - Catatonia [Unknown]
  - Mental status changes [Unknown]
  - Delirium [Unknown]
  - Endocrine disorder [Recovered/Resolved]
